FAERS Safety Report 4852429-5 (Version None)
Quarter: 2005Q4

REPORT INFORMATION
  Report Type: 
  Country: None (occurrence: None)
  Receive Date: 20051130
  Receipt Date: 20050812
  Transmission Date: 20060501
  Serious: No
  Sender: FDA-Public Use
  Company Number: WAES 0507USA02723

PATIENT
  Age: 84 Year
  Sex: Female

DRUGS (10)
  1. ZETIA [Suspect]
     Indication: HYPERCHOLESTEROLAEMIA
     Dosage: 10 MG/DAILY/PO
     Route: 048
     Dates: start: 20050625, end: 20050627
  2. K-TAB [Concomitant]
  3. LASIX [Concomitant]
  4. MICARDIS [Concomitant]
  5. MIRALAX [Concomitant]
  6. OGEN [Concomitant]
  7. PLETAL [Concomitant]
  8. SULAR [Concomitant]
  9. XANAX [Concomitant]
  10. AMITRIPTYLINE HCL [Concomitant]

REACTIONS (2)
  - PRURITUS [None]
  - RASH GENERALISED [None]
